FAERS Safety Report 8300644-0 (Version None)
Quarter: 2012Q2

REPORT INFORMATION
  Report Type: 
  Country: None (occurrence: None)
  Receive Date: 20120420
  Receipt Date: 20120412
  Transmission Date: 20120825
  Serious: Yes (Other)
  Sender: FDA-Public Use
  Company Number: PHHY2012IN031317

PATIENT
  Age: 38 Year
  Sex: Male

DRUGS (4)
  1. TAXIN [Concomitant]
  2. ZINETRE [Concomitant]
  3. SEPLIX [Concomitant]
  4. DICLOFENAC SODIUM [Suspect]
     Dosage: UNK

REACTIONS (4)
  - CHOKING [None]
  - SWELLING FACE [None]
  - TUBULOINTERSTITIAL NEPHRITIS [None]
  - DYSPNOEA [None]
